FAERS Safety Report 6267887-1 (Version None)
Quarter: 2009Q3

REPORT INFORMATION
  Report Type: 
  Country: None (occurrence: None)
  Receive Date: 20090710
  Receipt Date: 20090710
  Transmission Date: 20100115
  Serious: Yes (Other)
  Sender: FDA-Public Use
  Company Number: None

PATIENT
  Age: 41 Year
  Sex: Female
  Weight: 53.5244 kg

DRUGS (1)
  1. AMBIEN [Suspect]
     Indication: INSOMNIA
     Dosage: 1 TABLET AT BEDTIME WHEN NECESSARY
     Dates: start: 20080501, end: 20080815

REACTIONS (7)
  - ABDOMINAL DISCOMFORT [None]
  - MENSTRUATION IRREGULAR [None]
  - MUSCLE SPASMS [None]
  - REPRODUCTIVE TRACT DISORDER [None]
  - SEXUAL DYSFUNCTION [None]
  - VAGINAL DISORDER [None]
  - VULVOVAGINAL MYCOTIC INFECTION [None]
